FAERS Safety Report 5201734-1 (Version None)
Quarter: 2006Q4

REPORT INFORMATION
  Report Type: 
  Country: None (occurrence: None)
  Receive Date: 20061013
  Receipt Date: 20050913
  Transmission Date: 20070319
  Serious: Yes (Other)
  Sender: FDA-Public Use
  Company Number: S05-USA-04305-01

PATIENT
  Age: 44 Year
  Sex: Male

DRUGS (9)
  1. LEXAPRO [Suspect]
     Indication: ANXIETY
     Dosage: 20 MG QD PO
     Route: 048
     Dates: start: 20030101, end: 20041001
  2. LEXAPRO [Suspect]
     Indication: DEPRESSION
     Dosage: 20 MG QD PO
     Route: 048
     Dates: start: 20030101, end: 20041001
  3. LEXAPRO [Suspect]
     Indication: DYSTHYMIC DISORDER
     Dosage: 20 MG QD PO
     Route: 048
     Dates: start: 20030101, end: 20041001
  4. LEXAPRO [Suspect]
     Indication: ANXIETY
     Dosage: 10 MG QD PO
     Route: 048
     Dates: start: 20030101, end: 20030101
  5. LEXAPRO [Suspect]
     Indication: DEPRESSION
     Dosage: 10 MG QD PO
     Route: 048
     Dates: start: 20030101, end: 20030101
  6. LEXAPRO [Suspect]
     Indication: DYSTHYMIC DISORDER
     Dosage: 10 MG QD PO
     Route: 048
     Dates: start: 20030101, end: 20030101
  7. TOPROL-XL [Concomitant]
  8. AVALIDE [Concomitant]
  9. LIPITOR [Concomitant]

REACTIONS (1)
  - SUICIDAL IDEATION [None]
